FAERS Safety Report 8608765-X (Version None)
Quarter: 2012Q3

REPORT INFORMATION
  Report Type: 
  Country: None (occurrence: None)
  Receive Date: 20120821
  Receipt Date: 20120816
  Transmission Date: 20120928
  Serious: Yes (Life-Threatening, Other)
  Sender: FDA-Public Use
  Company Number: IT-BAYER-2012-083517

PATIENT
  Age: 19 Year
  Sex: Male

DRUGS (3)
  1. ANTIHEMOPHILIC FACTOR NOS [Suspect]
     Indication: SPLENIC RUPTURE
     Dosage: DURING SURGERY
     Route: 042
  2. ANTIHEMOPHILIC FACTOR (HUMAN) [Suspect]
     Indication: ACTIVATED PARTIAL THROMBOPLASTIN TIME PROLONGED
     Route: 042
  3. ANTIHEMOPHILIC FACTOR NOS [Suspect]
     Indication: SURGERY
     Dosage: UNK
     Route: 042

REACTIONS (8)
  - SHOCK HAEMORRHAGIC [None]
  - HAEMORRHAGE [None]
  - ANTI FACTOR VIII ANTIBODY POSITIVE [None]
  - HAEMATOMA [None]
  - ACTIVATED PARTIAL THROMBOPLASTIN TIME PROLONGED [None]
  - HAEMOGLOBIN DECREASED [None]
  - COMPARTMENT SYNDROME [None]
  - ANAEMIA [None]
